FAERS Safety Report 5856146-4 (Version None)
Quarter: 2008Q3

REPORT INFORMATION
  Report Type: 
  Country: None (occurrence: None)
  Receive Date: 20080821
  Receipt Date: 20080806
  Transmission Date: 20090109
  Serious: Yes (Other)
  Sender: FDA-Public Use
  Company Number: 2008S1000232

PATIENT
  Age: 66 Year
  Sex: Female
  Weight: 65.9984 kg

DRUGS (2)
  1. ACITRETIN [Suspect]
     Indication: DRUG USE FOR UNKNOWN INDICATION
     Dosage: ; PO
     Route: 048
     Dates: end: 20080501
  2. XELODA [Suspect]
     Indication: LIP AND/OR ORAL CAVITY CANCER
     Dosage: 1000 MG; BID; PO
     Route: 048
     Dates: start: 20080520, end: 20080602

REACTIONS (15)
  - AGEUSIA [None]
  - ARTHRALGIA [None]
  - ASTHENIA [None]
  - CONDITION AGGRAVATED [None]
  - DYSPEPSIA [None]
  - EATING DISORDER [None]
  - HEPATIC FIBROSIS [None]
  - HEPATIC STEATOSIS [None]
  - LEUKOPLAKIA [None]
  - LIP SWELLING [None]
  - LIVER INJURY [None]
  - PAIN [None]
  - SENSORY LOSS [None]
  - SKIN DISORDER [None]
  - WEIGHT DECREASED [None]
